FAERS Safety Report 9832826 (Version 1)
Quarter: 2014Q1

REPORT INFORMATION
  Report Type: Spontaneous
  Country: MU (occurrence: MU)
  Receive Date: 20140121
  Receipt Date: 20140121
  Transmission Date: 20141002
  Serious: Yes (Other)
  Sender: FDA-Public Use
  Company Number: MU-GLAXOSMITHKLINE-B0962012A

PATIENT
  Age: 62 Year
  Sex: Female

DRUGS (1)
  1. ZELITREX [Suspect]
     Indication: ORAL HERPES
     Dosage: 500MG TWICE PER DAY
     Route: 065

REACTIONS (7)
  - Pemphigus [Not Recovered/Not Resolved]
  - Dermatitis bullous [Not Recovered/Not Resolved]
  - Gastrointestinal necrosis [Not Recovered/Not Resolved]
  - Skin lesion [Not Recovered/Not Resolved]
  - Anal pruritus [Not Recovered/Not Resolved]
  - Rectal discharge [Not Recovered/Not Resolved]
  - Anorectal disorder [Not Recovered/Not Resolved]
